FAERS Safety Report 8278811-4 (Version None)
Quarter: 2012Q2

REPORT INFORMATION
  Report Type: 
  Country: None (occurrence: None)
  Receive Date: 20120412
  Receipt Date: 20110412
  Transmission Date: 20120825
  Serious: No
  Sender: FDA-Public Use
  Company Number: US-ASTRAZENECA-2009UW09611

PATIENT
  Age: 49 Year
  Sex: Male

DRUGS (4)
  1. PRILOSEC [Suspect]
     Route: 048
  2. NEXIUM [Suspect]
     Route: 048
  3. SEROQUEL XR [Suspect]
     Indication: BIPOLAR DISORDER
     Route: 048
  4. REMERON [Concomitant]

REACTIONS (7)
  - ABDOMINAL DISCOMFORT [None]
  - PERFORMANCE STATUS DECREASED [None]
  - MENTAL DISORDER [None]
  - LETHARGY [None]
  - DRUG TOLERANCE DECREASED [None]
  - HEADACHE [None]
  - DRUG INEFFECTIVE [None]
